FAERS Safety Report 11938393 (Version 1)
Quarter: 2016Q1

REPORT INFORMATION
  Report Type: Spontaneous
  Country: US (occurrence: None)
  Receive Date: 20160121
  Receipt Date: 20160121
  Transmission Date: 20160526
  Serious: Yes (Other)
  Sender: FDA-Public Use
  Company Number: None

PATIENT
  Age: 59 Year
  Sex: Male
  Weight: 83.92 kg

DRUGS (6)
  1. FLUVOXAMINE MALEATE 50 MG ANI PHARMACEUTICALS [Suspect]
     Active Substance: FLUVOXAMINE MALEATE
     Indication: OBSESSIVE-COMPULSIVE DISORDER
     Dosage: 1 PILL, TWICE DAILY, TAKEN BY MOUTH
     Dates: start: 20150813, end: 20160120
  2. ASPIRIN. [Concomitant]
     Active Substance: ASPIRIN
  3. FLUVOXAMINE MALEATE. [Concomitant]
     Active Substance: FLUVOXAMINE MALEATE
  4. CHLORPHENIRAMINE MALEATE. [Concomitant]
     Active Substance: CHLORPHENIRAMINE MALEATE
  5. LEVOTHYROXINE SODIUM. [Concomitant]
     Active Substance: LEVOTHYROXINE SODIUM
  6. PSEUDOEPHEDRINE HCL [Concomitant]
     Active Substance: PSEUDOEPHEDRINE HYDROCHLORIDE

REACTIONS (4)
  - Disease recurrence [None]
  - Product substitution issue [None]
  - Obsessive-compulsive disorder [None]
  - Drug ineffective [None]

NARRATIVE: CASE EVENT DATE: 20151222
